FAERS Safety Report 7751904-3 (Version None)
Quarter: 2011Q3

REPORT INFORMATION
  Report Type: 
  Country: None (occurrence: None)
  Receive Date: 20110914
  Receipt Date: 20110914
  Transmission Date: 20111222
  Serious: No
  Sender: FDA-Public Use
  Company Number: None

PATIENT
  Sex: Female
  Weight: 78.02 kg

DRUGS (2)
  1. TAXOL [Suspect]
     Dosage: 147 MG
     Dates: end: 20110908
  2. HERCEPTIN [Suspect]
     Dosage: 313 MG
     Dates: end: 20110908

REACTIONS (5)
  - CHILLS [None]
  - TREMOR [None]
  - OESOPHAGEAL PAIN [None]
  - FEELING COLD [None]
  - NAUSEA [None]
